FAERS Safety Report 8215421-9 (Version None)
Quarter: 2012Q1

REPORT INFORMATION
  Report Type: 
  Country: None (occurrence: None)
  Receive Date: 20120316
  Receipt Date: 20120309
  Transmission Date: 20120608
  Serious: Yes (Hospitalization, Other)
  Sender: FDA-Public Use
  Company Number: US-AMGEN-USASP2012015646

PATIENT
  Age: 58 Year
  Sex: Female

DRUGS (1)
  1. ENBREL [Suspect]
     Indication: RHEUMATOID ARTHRITIS
     Dosage: 50 MG, QWK
     Dates: start: 20030501, end: 20111129

REACTIONS (4)
  - BRONCHITIS [None]
  - LUNG NEOPLASM MALIGNANT [None]
  - VOCAL CORD PARALYSIS [None]
  - STAPHYLOCOCCAL INFECTION [None]
